FAERS Safety Report 6121993-0 (Version None)
Quarter: 2009Q1

REPORT INFORMATION
  Report Type: 
  Country: None (occurrence: None)
  Receive Date: 20090316
  Receipt Date: 20090305
  Transmission Date: 20090719
  Serious: Yes (Other)
  Sender: FDA-Public Use
  Company Number: 037519

PATIENT
  Age: 32 Year
  Sex: Female

DRUGS (1)
  1. CLARAVIS [Suspect]
     Dosage: 40 MG (40 MG, 1 IN 1 D)
     Dates: start: 20080919, end: 20081202

REACTIONS (5)
  - ABORTION INDUCED [None]
  - DRUG EXPOSURE DURING PREGNANCY [None]
  - PREGNANCY AFTER POST COITAL CONTRACEPTION [None]
  - PREGNANCY WITH CONTRACEPTIVE DEVICE [None]
  - UNINTENDED PREGNANCY [None]
